FAERS Safety Report 7277908-5 (Version None)
Quarter: 2011Q1

REPORT INFORMATION
  Report Type: 
  Country: None (occurrence: None)
  Receive Date: 20110207
  Receipt Date: 20110113
  Transmission Date: 20110831
  Serious: Yes (Other)
  Sender: FDA-Public Use
  Company Number: US-ROCHE-733916

PATIENT
  Sex: Female
  Weight: 76.2 kg

DRUGS (4)
  1. LAMICTAL [Concomitant]
     Dosage: FREQUENCY REPORTED AS ^1^.
     Route: 048
     Dates: start: 20090515
  2. TRAZODONE [Concomitant]
     Indication: SLEEP DISORDER THERAPY
     Dosage: FREQUENCY REPORTED AS ^1^.
     Route: 048
     Dates: start: 20101027
  3. KLONOPIN [Suspect]
     Indication: ANXIETY
     Dosage: FREQUENCY REPORTED AS ^1^, OTHER INDICATION: SLEEP.
     Route: 048
     Dates: start: 20090902
  4. SEROQUEL [Suspect]
     Dosage: TAKEN EVERY NIGHT (QHS).
     Route: 048
     Dates: start: 20090501, end: 20101103

REACTIONS (2)
  - HYPONATRAEMIA [None]
  - INAPPROPRIATE ANTIDIURETIC HORMONE SECRETION [None]
